FAERS Safety Report 13284954 (Version 14)
Quarter: 2020Q1

REPORT INFORMATION
  Report Type: Spontaneous
  Country: US (occurrence: US)
  Receive Date: 20170301
  Receipt Date: 20200317
  Transmission Date: 20200409
  Serious: Yes (Hospitalization, Other)
  Sender: FDA-Public Use
  Company Number: US-INCYTE CORPORATION-2017IN001205

PATIENT

DRUGS (34)
  1. JAKAFI [Suspect]
     Active Substance: RUXOLITINIB
     Dosage: 5 MG QAM, 10 MG QPM
     Route: 065
     Dates: start: 2017, end: 201703
  2. JAKAFI [Suspect]
     Active Substance: RUXOLITINIB
     Dosage: 5 MG QAM, 10 MG QPM
     Route: 065
     Dates: start: 20170413
  3. JAKAFI [Suspect]
     Active Substance: RUXOLITINIB
     Dosage: 10 MG, QAM
     Route: 048
  4. JAKAFI [Suspect]
     Active Substance: RUXOLITINIB
     Dosage: 5 MG AM, 10 MG PM BID
     Route: 065
  5. JAKAFI [Suspect]
     Active Substance: RUXOLITINIB
     Dosage: 5 MG QPM AND 10 MG QPM
     Route: 065
  6. GABAPENTIN. [Concomitant]
     Active Substance: GABAPENTIN
     Indication: PRODUCT USED FOR UNKNOWN INDICATION
     Route: 065
  7. VITAMIN D                          /00107901/ [Concomitant]
     Active Substance: ERGOCALCIFEROL
     Indication: PRODUCT USED FOR UNKNOWN INDICATION
     Route: 065
  8. EFFEXOR [Concomitant]
     Active Substance: VENLAFAXINE HYDROCHLORIDE
     Indication: PRODUCT USED FOR UNKNOWN INDICATION
     Route: 065
  9. PANTOPRAZOLE [Concomitant]
     Active Substance: PANTOPRAZOLE
     Indication: PRODUCT USED FOR UNKNOWN INDICATION
     Route: 065
  10. CLARITIN [Concomitant]
     Active Substance: LORATADINE
     Indication: PRODUCT USED FOR UNKNOWN INDICATION
     Route: 065
  11. JAKAFI [Suspect]
     Active Substance: RUXOLITINIB
     Dosage: 10 MG, QHS
     Route: 048
     Dates: start: 201704
  12. MIRALAX [Concomitant]
     Active Substance: POLYETHYLENE GLYCOL 3350
     Indication: PRODUCT USED FOR UNKNOWN INDICATION
     Route: 065
  13. ELIQUIS [Concomitant]
     Active Substance: APIXABAN
     Indication: PRODUCT USED FOR UNKNOWN INDICATION
     Route: 065
  14. ADVANTAN [Concomitant]
     Active Substance: METHYLPREDNISOLONE ACEPONATE
     Indication: PRODUCT USED FOR UNKNOWN INDICATION
     Route: 065
  15. JAKAFI [Suspect]
     Active Substance: RUXOLITINIB
     Dosage: 10 MG QPM
     Route: 065
     Dates: end: 20170921
  16. POTASSIUM [Concomitant]
     Active Substance: POTASSIUM
     Indication: PRODUCT USED FOR UNKNOWN INDICATION
     Route: 065
  17. SENOKOT [Concomitant]
     Active Substance: SENNOSIDES
     Indication: PRODUCT USED FOR UNKNOWN INDICATION
     Route: 065
  18. LASIX [Concomitant]
     Active Substance: FUROSEMIDE
     Indication: PRODUCT USED FOR UNKNOWN INDICATION
     Route: 065
  19. MORPHINE                           /00036303/ [Concomitant]
     Active Substance: MORPHINE HYDROCHLORIDE
     Indication: PRODUCT USED FOR UNKNOWN INDICATION
     Route: 065
  20. PROBIOTIC                          /06395501/ [Concomitant]
     Active Substance: BIFIDOBACTERIUM ANIMALIS LACTIS
     Indication: PRODUCT USED FOR UNKNOWN INDICATION
     Route: 065
  21. ATIVAN [Concomitant]
     Active Substance: LORAZEPAM
     Indication: PRODUCT USED FOR UNKNOWN INDICATION
     Route: 065
  22. JAKAFI [Suspect]
     Active Substance: RUXOLITINIB
     Dosage: 10 MG, QPM
     Route: 048
     Dates: start: 201703, end: 20170408
  23. JAKAFI [Suspect]
     Active Substance: RUXOLITINIB
     Dosage: 10 MG, QD
     Route: 048
     Dates: start: 201705
  24. JAKAFI [Suspect]
     Active Substance: RUXOLITINIB
     Dosage: 10 MG, BID
     Route: 048
     Dates: start: 201703, end: 201703
  25. JAKAFI [Suspect]
     Active Substance: RUXOLITINIB
     Dosage: 10 MG, BID
     Route: 048
  26. JAKAFI [Suspect]
     Active Substance: RUXOLITINIB
     Dosage: 10 MG, BID
     Route: 048
     Dates: start: 201704
  27. JAKAFI [Suspect]
     Active Substance: RUXOLITINIB
     Dosage: 5 MG QAM AND 10 MG QPM
     Route: 065
     Dates: start: 20170921
  28. JAKAFI [Suspect]
     Active Substance: RUXOLITINIB
     Dosage: 5 MG AM, 10 MG QPM
     Route: 048
  29. JAKAFI [Suspect]
     Active Substance: RUXOLITINIB
     Dosage: 10 MILLIGRAM, BID (2X5MG)
     Route: 048
     Dates: start: 20190822
  30. ZOFRAN [Concomitant]
     Active Substance: ONDANSETRON HYDROCHLORIDE
     Indication: PRODUCT USED FOR UNKNOWN INDICATION
     Route: 065
  31. JAKAFI [Suspect]
     Active Substance: RUXOLITINIB
     Indication: MYELOFIBROSIS
     Dosage: 5 MG, BID
     Route: 048
     Dates: start: 20170213, end: 2017
  32. PROTONIX                           /00661201/ [Concomitant]
     Active Substance: OMEPRAZOLE
     Indication: PRODUCT USED FOR UNKNOWN INDICATION
     Route: 065
  33. TRIPHROCAPS [Concomitant]
     Active Substance: ASCORBIC ACID\BIOTIN\CALCIUM PANTOTHENATE\CYANOCOBALAMIN\FOLIC ACID\NIACINAMIDE\PYRIDOXINE HYDROCHLORIDE\RIBOFLAVIN\THIAMINE HYDROCHLORIDE
     Indication: PRODUCT USED FOR UNKNOWN INDICATION
     Route: 065
  34. DILAUDID [Concomitant]
     Active Substance: HYDROMORPHONE HYDROCHLORIDE
     Indication: PRODUCT USED FOR UNKNOWN INDICATION
     Route: 065

REACTIONS (40)
  - Arthralgia [Unknown]
  - Erythema [Unknown]
  - Skin exfoliation [Unknown]
  - Platelet count decreased [Unknown]
  - Alopecia [Unknown]
  - Flatulence [Unknown]
  - Gastric pH decreased [Unknown]
  - Loss of personal independence in daily activities [Unknown]
  - Musculoskeletal chest pain [Unknown]
  - Dyspnoea [Unknown]
  - Pain in extremity [Unknown]
  - Incorrect dose administered [Not Recovered/Not Resolved]
  - White blood cell count increased [Unknown]
  - Movement disorder [Unknown]
  - Stomatitis [Unknown]
  - Budd-Chiari syndrome [Unknown]
  - Hot flush [Unknown]
  - Jugular vein distension [Unknown]
  - Pruritus [Unknown]
  - Night sweats [Unknown]
  - Splenomegaly [Unknown]
  - White blood cell count decreased [Unknown]
  - Blood count abnormal [Unknown]
  - Skin ulcer [Unknown]
  - Noninfective gingivitis [Unknown]
  - Anaemia [Unknown]
  - Hyperhidrosis [Unknown]
  - Body temperature increased [Unknown]
  - Chest discomfort [Unknown]
  - Mobility decreased [Unknown]
  - Red blood cell count decreased [Unknown]
  - Dizziness [Unknown]
  - Limb deformity [Unknown]
  - Bone pain [Unknown]
  - Pneumonia [Recovering/Resolving]
  - Abdominal pain [Unknown]
  - Pain [Unknown]
  - Fatigue [Unknown]
  - Haemoptysis [Unknown]
  - Hypoaesthesia [Unknown]

NARRATIVE: CASE EVENT DATE: 2017
